FAERS Safety Report 10463378 (Version 1)
Quarter: 2014Q3

REPORT INFORMATION
  Report Type: Spontaneous
  Country: US (occurrence: None)
  Receive Date: 20140918
  Receipt Date: 20140918
  Transmission Date: 20150326
  Serious: Yes (Life-Threatening)
  Sender: FDA-Public Use
  Company Number: None

PATIENT
  Age: 19 Year
  Sex: Female
  Weight: 83.92 kg

DRUGS (1)
  1. ALLERGENIC EXTRACT [Suspect]
     Active Substance: ALLERGENIC EXTRACTS
     Indication: HYPERSENSITIVITY
     Dosage: ENT ASSOCIATES WEED MIX 2, WEEKLY, INTO THE MUSCLE

REACTIONS (4)
  - Lethargy [None]
  - Injection site swelling [None]
  - Dyspnoea [None]
  - Malaise [None]

NARRATIVE: CASE EVENT DATE: 20140915
